FAERS Safety Report 8183906-X (Version None)
Quarter: 2012Q1

REPORT INFORMATION
  Report Type: 
  Country: None (occurrence: None)
  Receive Date: 20120305
  Receipt Date: 20120229
  Transmission Date: 20120608
  Serious: Yes (Other)
  Sender: FDA-Public Use
  Company Number: IT-PFIZER INC-2012056154

PATIENT
  Sex: Female

DRUGS (3)
  1. RAMIPRIL [Suspect]
     Dosage: UNK
  2. CARVEDILOL [Suspect]
     Dosage: UNK
  3. NITROGLYCERIN [Suspect]
     Dosage: UNK

REACTIONS (1)
  - SYNCOPE [None]
